FAERS Safety Report 22013630 (Version 1)
Quarter: 2023Q1

REPORT INFORMATION
  Report Type: Spontaneous
  Country: IT (occurrence: IT)
  Receive Date: 20230220
  Receipt Date: 20230220
  Transmission Date: 20230417
  Serious: Yes (Other)
  Sender: FDA-Public Use
  Company Number: IT-AUROBINDO-AUR-APL-2023-006276

PATIENT
  Age: 8 Year
  Sex: Male

DRUGS (6)
  1. CETIRIZINE [Suspect]
     Active Substance: CETIRIZINE HYDROCHLORIDE
     Indication: Systemic mastocytosis
     Dosage: 10 MILLIGRAM, TWO TIMES A DAY
     Route: 048
  2. KETOTIFEN [Suspect]
     Active Substance: KETOTIFEN
     Indication: Systemic mastocytosis
     Dosage: 1 MILLIGRAM, TWO TIMES A DAY
     Route: 048
  3. PREDNISONE [Suspect]
     Active Substance: PREDNISONE
     Indication: Systemic mastocytosis
     Dosage: UNK (1?2 MG/KG/DAY FOR AVERAGE 2?5 CONSECUTIVE DAYS)
     Route: 048
  4. CROMOLYN SODIUM [Suspect]
     Active Substance: CROMOLYN SODIUM
     Indication: Systemic mastocytosis
     Dosage: 250 MILLIGRAM, FOUR TIMES/DAY
     Route: 048
  5. CROMOLYN SODIUM [Suspect]
     Active Substance: CROMOLYN SODIUM
     Dosage: 250 MILLIGRAM, 3 TIMES A DAY
     Route: 048
  6. XOLAIR [Concomitant]
     Active Substance: OMALIZUMAB
     Indication: Systemic mastocytosis
     Dosage: 300 MILLIGRAM EVERY 4 WEEKS
     Route: 058

REACTIONS (1)
  - Drug ineffective [Unknown]
